FAERS Safety Report 7748953-8 (Version None)
Quarter: 2011Q3

REPORT INFORMATION
  Report Type: 
  Country: None (occurrence: None)
  Receive Date: 20110914
  Receipt Date: 20110906
  Transmission Date: 20111222
  Serious: Yes (Death, Other)
  Sender: FDA-Public Use
  Company Number: US-BAYER-2011-083601

PATIENT
  Sex: Female

DRUGS (1)
  1. YASMIN [Suspect]

REACTIONS (15)
  - PULMONARY EMBOLISM [None]
  - ANXIETY [None]
  - CEREBRAL THROMBOSIS [None]
  - HEPATIC ADENOMA [None]
  - PAIN [None]
  - ANHEDONIA [None]
  - GALLBLADDER DISORDER [None]
  - DEEP VEIN THROMBOSIS [None]
  - INJURY [None]
  - THROMBOPHLEBITIS [None]
  - EMBOLISM ARTERIAL [None]
  - DEATH [None]
  - MYOCARDIAL INFARCTION [None]
  - CEREBRAL HAEMORRHAGE [None]
  - HYPERTENSION [None]
